FAERS Safety Report 9263368 (Version 1)
Quarter: 2013Q2

REPORT INFORMATION
  Report Type: Spontaneous
  Country: US (occurrence: US)
  Receive Date: 20130430
  Receipt Date: 20130430
  Transmission Date: 20140414
  Serious: No
  Sender: FDA-Public Use
  Company Number: US-ABBOTT-12P-163-0977845-00

PATIENT
  Age: 70 Year
  Sex: Female
  Weight: 61.29 kg

DRUGS (1)
  1. CREON [Suspect]
     Indication: FAT INTOLERANCE
     Dates: start: 20120903, end: 20120906

REACTIONS (5)
  - Feeling abnormal [Recovered/Resolved]
  - Disturbance in attention [Recovered/Resolved]
  - Nausea [Recovered/Resolved]
  - Abdominal discomfort [Recovered/Resolved]
  - Coeliac disease [Recovered/Resolved]
